FAERS Safety Report 21466061 (Version 1)
Quarter: 2022Q4

REPORT INFORMATION
  Report Type: Spontaneous
  Country: US (occurrence: None)
  Receive Date: 20221016
  Receipt Date: 20221016
  Transmission Date: 20230112
  Serious: Yes (Other)
  Sender: FDA-Public Use
  Company Number: None

PATIENT
  Age: 89 Year
  Sex: Male
  Weight: 92.25 kg

DRUGS (12)
  1. AVODART [Suspect]
     Active Substance: DUTASTERIDE
     Indication: Benign prostatic hyperplasia
     Dosage: OTHER QUANTITY : 90 CAPSULE(S);?FREQUENCY : AT BEDTIME;?
     Route: 048
     Dates: start: 20210621, end: 20221005
  2. FINASTERIDE [Suspect]
     Active Substance: FINASTERIDE
     Indication: Benign prostatic hyperplasia
     Dosage: OTHER QUANTITY : 90 TABLET(S);?FREQUENCY : AT BEDTIME;?
     Route: 048
  3. Carbidopa/Levodopa (Sinemet CR) [Concomitant]
  4. VITAMIN D [Concomitant]
     Active Substance: VITAMIN D NOS
  5. LIPITOR [Concomitant]
     Active Substance: ATORVASTATIN CALCIUM
  6. Namzaric (Memantine HCL) [Concomitant]
  7. Clopidegral [Concomitant]
  8. CEPHALAXIN [Concomitant]
     Active Substance: CEPHALEXIN ANHYDROUS
  9. METOPROLOL [Concomitant]
     Active Substance: METOPROLOL
  10. AMLODIPINE [Concomitant]
     Active Substance: AMLODIPINE BESYLATE
  11. MELATONIN [Concomitant]
     Active Substance: MELATONIN
  12. CRANBERRY [Concomitant]
     Active Substance: CRANBERRY

REACTIONS (3)
  - Gynaecomastia [None]
  - Breast swelling [None]
  - Breast tenderness [None]

NARRATIVE: CASE EVENT DATE: 20220919
